FAERS Safety Report 5970984-9 (Version None)
Quarter: 2008Q4

REPORT INFORMATION
  Report Type: 
  Country: None (occurrence: None)
  Receive Date: 20081128
  Receipt Date: 20081120
  Transmission Date: 20090506
  Serious: Yes (Hospitalization)
  Sender: FDA-Public Use
  Company Number: PHHY2008AR29019

PATIENT
  Sex: Male

DRUGS (1)
  1. DIOVAN [Suspect]
     Indication: BLOOD PRESSURE MANAGEMENT
     Dosage: 160 MG, QD
     Dates: start: 20081104

REACTIONS (3)
  - AORTIC VALVE REPLACEMENT [None]
  - CARDIAC DISORDER [None]
  - CORONARY ARTERY BYPASS [None]
